FAERS Safety Report 16477319 (Version 6)
Quarter: 2020Q4

REPORT INFORMATION
  Report Type: Other
  Country: DE (occurrence: DE)
  Receive Date: 20190626
  Receipt Date: 20201001
  Transmission Date: 20210113
  Serious: Yes (Hospitalization)
  Sender: FDA-Public Use
  Company Number: DE-ROCHE-2338111

PATIENT
  Age: 58 Year
  Sex: Male
  Weight: 61 kg

DRUGS (13)
  1. OCRELIZUMAB. [Suspect]
     Active Substance: OCRELIZUMAB
     Indication: RELAPSING MULTIPLE SCLEROSIS
     Dosage: 11/OCT/2018- RECEIVED MOST RECENT DOSE
     Route: 042
     Dates: start: 20180927
  2. MIRTAZAPINE. [Concomitant]
     Active Substance: MIRTAZAPINE
     Indication: SLEEP DISORDER
     Dosage: ONGOING
     Route: 048
  3. DUODART [Concomitant]
     Active Substance: DUTASTERIDE\TAMSULOSIN
     Indication: BENIGN PROSTATIC HYPERPLASIA
     Dosage: ONGOING 0.4-0.5 MG
     Route: 048
     Dates: start: 20190607, end: 201909
  4. HISTAKUT [Concomitant]
     Active Substance: DIMETHINDENE MALEATE
     Indication: PREMEDICATION
     Dosage: ONGOING STARTING DOSE 1 X EVERY 2 WEEKS
     Route: 042
     Dates: start: 20180927
  5. SIMVASTATIN. [Concomitant]
     Active Substance: SIMVASTATIN
     Indication: BLOOD CHOLESTEROL INCREASED
     Dosage: ONGOING
     Route: 048
  6. FOLSAEURE [Concomitant]
     Active Substance: FOLIC ACID
     Indication: FOLATE DEFICIENCY
     Dosage: ONGOING
     Route: 048
  7. PANTOZOL [Concomitant]
     Active Substance: PANTOPRAZOLE SODIUM
     Indication: PREMEDICATION
     Dosage: ONGOING STARTING DOSE 1 X EVERY 2 WEEKS
     Route: 048
     Dates: start: 20180927
  8. PARACETAMOL [Concomitant]
     Active Substance: ACETAMINOPHEN
     Indication: PREMEDICATION
     Dosage: ONGOING STARTING DOSE 1 X EVERY 2 WEEKS
     Route: 048
     Dates: start: 20180927
  9. OMACOR [Concomitant]
     Active Substance: OMEGA-3-ACID ETHYL ESTERS
     Indication: LIPIDS INCREASED
     Dosage: ONGOING
     Route: 048
  10. UBRETID [Concomitant]
     Active Substance: DISTIGMINE BROMIDE
     Dosage: ONGOING
     Route: 048
  11. PREDNISOLUT [Concomitant]
     Active Substance: PREDNISOLONE
     Indication: PREMEDICATION
     Dosage: ONGOING STARTING DOSE 1 X EVERY 2 WEEKS
     Route: 042
     Dates: start: 20180927
  12. OCRELIZUMAB. [Suspect]
     Active Substance: OCRELIZUMAB
     Route: 042
     Dates: start: 20190404
  13. TAMSULOSIN [Concomitant]
     Active Substance: TAMSULOSIN
     Indication: BENIGN PROSTATIC HYPERPLASIA
     Route: 048
     Dates: end: 20190607

REACTIONS (2)
  - Urinary tract infection [Recovering/Resolving]
  - Urinary retention [Recovered/Resolved]

NARRATIVE: CASE EVENT DATE: 20190605
